FAERS Safety Report 6337249-7 (Version None)
Quarter: 2009Q3

REPORT INFORMATION
  Report Type: 
  Country: None (occurrence: None)
  Receive Date: 20090902
  Receipt Date: 20090825
  Transmission Date: 20100115
  Serious: Yes (Other)
  Sender: FDA-Public Use
  Company Number: US-BIOGENIDEC-2009BI027190

PATIENT
  Sex: Female

DRUGS (3)
  1. TYSABRI [Suspect]
     Indication: MULTIPLE SCLEROSIS
     Route: 042
     Dates: start: 20070226, end: 20070716
  2. TYSABRI [Suspect]
     Route: 042
     Dates: start: 20071114
  3. LYRICA [Concomitant]
     Indication: BLEPHAROSPASM

REACTIONS (3)
  - BLEPHAROSPASM [None]
  - CEREBROVASCULAR ACCIDENT [None]
  - IMMUNE SYSTEM DISORDER [None]
